FAERS Safety Report 5265604-5 (Version None)
Quarter: 2007Q1

REPORT INFORMATION
  Report Type: 
  Country: None (occurrence: None)
  Receive Date: 20061213
  Receipt Date: 20030618
  Transmission Date: 20070707
  Serious: Yes (Other)
  Sender: FDA-Public Use
  Company Number: 2003UW07741

PATIENT
  Age: 78 Year
  Sex: Female
  Weight: 72.5755 kg

DRUGS (4)
  1. IRESSA [Suspect]
     Indication: NON-SMALL CELL LUNG CANCER
     Dosage: 250 MG DAILY PO
     Route: 048
     Dates: start: 20030604
  2. CELEXA [Concomitant]
  3. PREMARIN [Concomitant]
  4. SYNTHROID [Concomitant]

REACTIONS (1)
  - VULVOVAGINAL MYCOTIC INFECTION [None]
